FAERS Safety Report 16377697 (Version 1)
Quarter: 2019Q2

REPORT INFORMATION
  Report Type: Spontaneous
  Country: JP (occurrence: JP)
  Receive Date: 20190531
  Receipt Date: 20190531
  Transmission Date: 20190711
  Serious: Yes (Death)
  Sender: FDA-Public Use
  Company Number: PHJP2019JP004680

PATIENT
  Age: 54 Year
  Sex: Male

DRUGS (3)
  1. CONCERTA [Concomitant]
     Active Substance: METHYLPHENIDATE HYDROCHLORIDE
     Indication: ATTENTION DEFICIT/HYPERACTIVITY DISORDER
     Dosage: 63 MG, UNK
     Route: 048
  2. TEGRETOL [Suspect]
     Active Substance: CARBAMAZEPINE
     Indication: MENTAL DISORDER
     Dosage: 100 MG, UNK
     Route: 048
     Dates: start: 20170610, end: 201706
  3. TEGRETOL [Suspect]
     Active Substance: CARBAMAZEPINE
     Indication: ATTENTION DEFICIT/HYPERACTIVITY DISORDER
     Dosage: 200 MG, UNK
     Route: 048
     Dates: start: 201706, end: 20170715

REACTIONS (2)
  - Drug reaction with eosinophilia and systemic symptoms [Fatal]
  - Enterocolitis viral [Fatal]

NARRATIVE: CASE EVENT DATE: 20170715
